FAERS Safety Report 25773530 (Version 4)
Quarter: 2025Q4

REPORT INFORMATION
  Report Type: Spontaneous
  Country: AR (occurrence: AR)
  Receive Date: 20250908
  Receipt Date: 20251223
  Transmission Date: 20260117
  Serious: Yes (Hospitalization, Other)
  Sender: HELSINN HEALTHCARE
  Company Number: AR-HBP-2025AR032372

PATIENT
  Sex: Female

DRUGS (2)
  1. AKYNZEO (NETUPITANT\PALONOSETRON HYDROCHLORIDE) [Suspect]
     Active Substance: NETUPITANT\PALONOSETRON HYDROCHLORIDE
     Indication: HER2 positive breast cancer
     Dosage: UNK, UNKNOWN
     Route: 048
     Dates: start: 20250807
  2. TRASTUZUMAB DERUXTECAN [Suspect]
     Active Substance: TRASTUZUMAB DERUXTECAN
     Indication: HER2 positive breast cancer
     Dosage: UNK, UNKNOWN
     Route: 065
     Dates: start: 20250807

REACTIONS (5)
  - Syncope [Unknown]
  - Immunosuppression [Unknown]
  - Pain [Unknown]
  - Off label use [Unknown]
  - Fatigue [Unknown]

NARRATIVE: CASE EVENT DATE: 20250817
